FAERS Safety Report 17966258 (Version 2)
Quarter: 2022Q2

REPORT INFORMATION
  Report Type: Report from Study
  Country: US (occurrence: US)
  Receive Date: 20200701
  Receipt Date: 20220601
  Transmission Date: 20220720
  Serious: Yes (Other)
  Sender: FDA-Public Use
  Company Number: US-BIOGEN-2020BI00891252

PATIENT
  Sex: Female
  Weight: 94.4 kg

DRUGS (15)
  1. TECFIDERA [Suspect]
     Active Substance: DIMETHYL FUMARATE
     Indication: Relapsing-remitting multiple sclerosis
     Route: 048
     Dates: start: 20170511
  2. TECFIDERA [Suspect]
     Active Substance: DIMETHYL FUMARATE
     Route: 065
     Dates: start: 201705
  3. TECFIDERA [Suspect]
     Active Substance: DIMETHYL FUMARATE
     Route: 048
     Dates: start: 20210601, end: 20220302
  4. TECFIDERA [Suspect]
     Active Substance: DIMETHYL FUMARATE
     Dosage: TAKE 1 CAPSULE (240 MG TOTAL) BY MOUTH 2 (TWO) TIMES A DAY
     Route: 048
     Dates: start: 20220420
  5. CHOLECALCIFEROL, VITAMIN D3 [Concomitant]
     Indication: Product used for unknown indication
     Dosage: TAKE 1 TABLET (4,000 UNITS TOTAL) BY MOUTH DAILY - ORAL?PATIENT TAKING DIFFERENTLY: TAKE 1 TABLET...
     Route: 048
     Dates: start: 20171127
  6. CYANOCOBALAMIN [Concomitant]
     Active Substance: CYANOCOBALAMIN
     Indication: Product used for unknown indication
     Dosage: INJECT 1 ML (1,000 MCG TOTAL) INTO THE SHOULDER, THIGH, OR BUTTOCKS EVERY 30 DAYS
     Route: 030
     Dates: start: 20211013
  7. DICLOFENAC SODIUM [Concomitant]
     Active Substance: DICLOFENAC SODIUM
     Indication: Product used for unknown indication
     Dosage: APPLY 1 APPLICATION TOPICALLY 2 (TWO) TIMES A DAY TO THE RT WRIST - TOPICAL (TOP)
     Route: 061
     Dates: start: 20211028
  8. JENTADUETO [Concomitant]
     Active Substance: LINAGLIPTIN\METFORMIN HYDROCHLORIDE
     Indication: Product used for unknown indication
     Dosage: TAKE 1 TABLET BY MOUTH 2 (TWO ) TIMES A DAY - ORAL?2.5-1000 MG TABLET
     Route: 048
  9. COZAAR [Concomitant]
     Active Substance: LOSARTAN POTASSIUM
     Indication: Product used for unknown indication
     Dosage: TAKE 25 MG BY MOUTH DAILY - ORAL
     Route: 048
     Dates: start: 20210324
  10. JENCYCLA [Concomitant]
     Active Substance: NORETHINDRONE
     Indication: Product used for unknown indication
     Dosage: TAKE 1 TABLET BY MOUTH DAILY - ORAL
     Route: 048
  11. PRAVACHOL [Concomitant]
     Active Substance: PRAVASTATIN SODIUM
     Indication: Product used for unknown indication
     Dosage: TAKE 10 MG BY MOUTH NIGHTLY - ORAL
     Route: 048
  12. JANUMET [Concomitant]
     Active Substance: METFORMIN HYDROCHLORIDE\SITAGLIPTIN PHOSPHATE
     Indication: Product used for unknown indication
     Dosage: TAKE 1 TABLET BY MOUTH 2 (TWO) TIMES A DAY WITH MEALS - ORAL?50-1000 MG PER TABLET
     Route: 048
  13. ZANAFLEX [Concomitant]
     Active Substance: TIZANIDINE HYDROCHLORIDE
     Indication: Product used for unknown indication
     Dosage: TAKE 2 TABLETS (8 MG TOTAL) BY MOUTH EVERY 8 (EIGHT) HOURS AS NEEDED FOR MUSCLE SPASMS FOR UP TO ...
     Route: 048
     Dates: start: 20180523, end: 20211028
  14. LISINOPRIL [Concomitant]
     Active Substance: LISINOPRIL
     Indication: Product used for unknown indication
     Route: 065
  15. PRAVASTATIN [Concomitant]
     Active Substance: PRAVASTATIN
     Indication: Product used for unknown indication
     Route: 065

REACTIONS (1)
  - Type 2 diabetes mellitus [Not Recovered/Not Resolved]
